FAERS Safety Report 9279282 (Version 3)
Quarter: 2013Q3

REPORT INFORMATION
  Report Type: Spontaneous
  Country: JP (occurrence: None)
  Receive Date: 20130501
  Receipt Date: 20130731
  Transmission Date: 20140515
  Serious: Yes (Other)
  Sender: FDA-Public Use
  Company Number: 2013-001289

PATIENT
  Age: 82 Year
  Sex: Female

DRUGS (1)
  1. ACTONEL [Suspect]
     Route: 048

REACTIONS (2)
  - Atypical femur fracture [None]
  - Bone disorder [None]
